FAERS Safety Report 4300606-4 (Version None)
Quarter: 2004Q1

REPORT INFORMATION
  Report Type: 
  Country: None (occurrence: None)
  Receive Date: 20040220
  Receipt Date: 20040209
  Transmission Date: 20041129
  Serious: Yes (Other)
  Sender: FDA-Public Use
  Company Number: BE-ROCHE-359168

PATIENT
  Sex: Female

DRUGS (2)
  1. PEGASYS [Suspect]
     Indication: HEPATITIS C
     Dosage: DOSING REGIMEN REPORTED AS QW.
     Route: 058
     Dates: start: 20031215
  2. COPEGUS [Suspect]
     Indication: HEPATITIS C
     Dosage: DOSING REGIMEN REPORTED AS DAILY.
     Route: 048
     Dates: start: 20031215

REACTIONS (2)
  - OSTEOPENIA [None]
  - PRURITUS [None]
